FAERS Safety Report 13759036 (Version 3)
Quarter: 2017Q4

REPORT INFORMATION
  Report Type: Spontaneous
  Country: US (occurrence: US)
  Receive Date: 20170717
  Receipt Date: 20171110
  Transmission Date: 20180320
  Serious: No
  Sender: FDA-Public Use
  Company Number: US-ASTRAZENECA-2017SE72607

PATIENT
  Age: 22663 Day
  Sex: Male
  Weight: 97.1 kg

DRUGS (1)
  1. BYDUREON [Suspect]
     Active Substance: EXENATIDE
     Indication: TYPE 2 DIABETES MELLITUS
     Route: 058

REACTIONS (6)
  - Injection site mass [Not Recovered/Not Resolved]
  - Incorrect dose administered [Unknown]
  - Intentional device misuse [Recovered/Resolved]
  - Injection site swelling [Unknown]
  - Device malfunction [Unknown]
  - Wrong technique in device usage process [Recovered/Resolved]

NARRATIVE: CASE EVENT DATE: 20170712
